FAERS Safety Report 5387391-2 (Version None)
Quarter: 2007Q3

REPORT INFORMATION
  Report Type: 
  Country: None (occurrence: None)
  Receive Date: 20070703
  Receipt Date: 20070409
  Transmission Date: 20080115
  Serious: No
  Sender: FDA-Public Use
  Company Number: 2007PV032799

PATIENT
  Sex: Male

DRUGS (3)
  1. SYMLIN [Suspect]
     Indication: TYPE 2 DIABETES MELLITUS
     Dosage: SC
     Route: 058
  2. CINNAMON [Concomitant]
  3. LANTUS [Concomitant]

REACTIONS (1)
  - DECREASED INSULIN REQUIREMENT [None]
